FAERS Safety Report 5193806-5 (Version None)
Quarter: 2006Q4

REPORT INFORMATION
  Report Type: 
  Country: None (occurrence: None)
  Receive Date: 20061221
  Receipt Date: 20061211
  Transmission Date: 20070319
  Serious: Yes (Other)
  Sender: FDA-Public Use
  Company Number: 2006152994

PATIENT
  Age: 48 Year
  Sex: Female

DRUGS (2)
  1. BENADRYL [Suspect]
     Indication: FOOD ALLERGY
     Dosage: 1-2 CAPSULES EVERY 6 HOURS (1 IN 6 HR), ORAL
     Route: 048
     Dates: start: 20061030, end: 20061105
  2. VICODIN [Concomitant]

REACTIONS (4)
  - CONDITION AGGRAVATED [None]
  - DRUG INEFFECTIVE [None]
  - PRURITUS [None]
  - URTICARIA [None]
